FAERS Safety Report 9018445 (Version 2)
Quarter: 2013Q1

REPORT INFORMATION
  Report Type: Spontaneous
  Country: CA (occurrence: CA)
  Receive Date: 20130118
  Receipt Date: 20130222
  Transmission Date: 20140127
  Serious: Yes (Other)
  Sender: FDA-Public Use
  Company Number: CA-AMGEN-CANSP2013001727

PATIENT
  Age: 56 Year
  Sex: Female
  Weight: 68.18 kg

DRUGS (2)
  1. PROLIA [Suspect]
     Indication: OSTEOPOROSIS
     Dosage: 60 MG, UNK
     Dates: start: 20120703
  2. PROLIA [Suspect]

REACTIONS (6)
  - Ovarian cyst [Not Recovered/Not Resolved]
  - Abdominal distension [Unknown]
  - Exercise tolerance decreased [Not Recovered/Not Resolved]
  - Gait disturbance [Not Recovered/Not Resolved]
  - Anxiety [Unknown]
  - Cough [Unknown]
